FAERS Safety Report 6292581-0 (Version None)
Quarter: 2009Q3

REPORT INFORMATION
  Report Type: 
  Country: None (occurrence: None)
  Receive Date: 20090731
  Receipt Date: 20090608
  Transmission Date: 20100115
  Serious: Yes (Other)
  Sender: FDA-Public Use
  Company Number: US-PURDUE-USA-2009-0039305

PATIENT
  Sex: Male

DRUGS (1)
  1. OXYCONTIN [Suspect]
     Indication: ANALGESIA
     Dosage: UNK
     Dates: start: 19990620, end: 20000107

REACTIONS (12)
  - AMNESIA [None]
  - ARTHRITIS [None]
  - BACK DISORDER [None]
  - CONFUSIONAL STATE [None]
  - DYSPNOEA [None]
  - HYPERTENSION [None]
  - MENTAL DISORDER [None]
  - PANIC ATTACK [None]
  - TREMOR [None]
  - URINARY TRACT DISORDER [None]
  - VISUAL IMPAIRMENT [None]
  - WEIGHT INCREASED [None]
